FAERS Safety Report 8504132-8 (Version None)
Quarter: 2012Q3

REPORT INFORMATION
  Report Type: 
  Country: None (occurrence: None)
  Receive Date: 20120711
  Receipt Date: 20120702
  Transmission Date: 20120928
  Serious: Yes (Hospitalization)
  Sender: FDA-Public Use
  Company Number: FR-009507513-1207FRA00007

PATIENT

DRUGS (2)
  1. SINEMET [Suspect]
     Dosage: 300MG-30
     Route: 048
     Dates: start: 20120601, end: 20120607
  2. SINEMET [Suspect]
     Indication: PARKINSON'S DISEASE
     Dosage: 300MG-30
     Route: 048
     Dates: start: 20090101, end: 20120601

REACTIONS (2)
  - DYSPNOEA [None]
  - OROMANDIBULAR DYSTONIA [None]
